FAERS Safety Report 13905562 (Version 1)
Quarter: 2017Q3

REPORT INFORMATION
  Report Type: Spontaneous
  Country: US (occurrence: None)
  Receive Date: 20170821
  Receipt Date: 20170821
  Transmission Date: 20171127
  Serious: No
  Sender: FDA-Public Use
  Company Number: None

PATIENT
  Age: 77 Year
  Sex: Female
  Weight: 74.84 kg

DRUGS (8)
  1. IVERMECTIN 3MG TABLETS [Suspect]
     Active Substance: IVERMECTIN
     Indication: ACARODERMATITIS
     Dosage: ?          QUANTITY:4 PILLS?
     Route: 048
     Dates: start: 20170717, end: 20170717
  2. TRAVATAN [Concomitant]
     Active Substance: TRAVOPROST
  3. DILTIAZEM. [Concomitant]
     Active Substance: DILTIAZEM
  4. VITAMIN D [Concomitant]
     Active Substance: CHOLECALCIFEROL
  5. FISH OIL [Concomitant]
     Active Substance: FISH OIL
  6. LUCETIN [Concomitant]
  7. LISINOPRIL. [Concomitant]
     Active Substance: LISINOPRIL
  8. CLONIDINE. [Concomitant]
     Active Substance: CLONIDINE

REACTIONS (8)
  - Vision blurred [None]
  - Fatigue [None]
  - Gait disturbance [None]
  - Dizziness [None]
  - Back pain [None]
  - Impaired driving ability [None]
  - Arthralgia [None]
  - Confusional state [None]

NARRATIVE: CASE EVENT DATE: 20170717
